FAERS Safety Report 7906048-4 (Version None)
Quarter: 2011Q4

REPORT INFORMATION
  Report Type: 
  Country: None (occurrence: None)
  Receive Date: 20111110
  Receipt Date: 20111110
  Transmission Date: 20120403
  Serious: Yes (Other)
  Sender: FDA-Public Use
  Company Number: None

PATIENT
  Age: 47 Year
  Sex: Male
  Weight: 140.61 kg

DRUGS (4)
  1. OXYCONTIN [Suspect]
     Indication: FIBROMYALGIA
     Dosage: 20MG
     Route: 048
     Dates: start: 20030101, end: 20111009
  2. OXYCONTIN [Suspect]
     Indication: SPINAL COLUMN STENOSIS
     Dosage: 20MG
     Route: 048
     Dates: start: 20030101, end: 20111009
  3. OXYCONTIN [Suspect]
     Indication: PAIN
     Dosage: 20MG
     Route: 048
     Dates: start: 20030101, end: 20111009
  4. OXYCONTIN [Suspect]
     Indication: NECK INJURY
     Dosage: 20MG
     Route: 048
     Dates: start: 20030101, end: 20111009

REACTIONS (6)
  - MUSCLE SPASMS [None]
  - FEELING ABNORMAL [None]
  - BLINDNESS [None]
  - RHINORRHOEA [None]
  - CHEST DISCOMFORT [None]
  - PRODUCT CONTAMINATION [None]
